FAERS Safety Report 8611672 (Version 3)
Quarter: 2012Q4

REPORT INFORMATION
  Report Type: 
  Country: US (occurrence: US)
  Receive Date: 20120613
  Receipt Date: 20121107
  Transmission Date: 20130627
  Serious: No
  Sender: FDA-Public Use
  Company Number: US-PFIZER INC-2012140432

PATIENT
  Age: 42 Year
  Sex: Female
  Weight: 86.17 kg

DRUGS (3)
  1. EFFEXOR XR [Suspect]
     Indication: DEPRESSION
     Dosage: 150 mg, 2x/day
     Route: 048
  2. REBIF [Concomitant]
     Dosage: UNK, 3x/week
  3. FERROUS SULFATE [Concomitant]
     Dosage: UNK

REACTIONS (2)
  - Laryngitis [Not Recovered/Not Resolved]
  - Ear infection [Recovered/Resolved]
